FAERS Safety Report 20061598 (Version 2)
Quarter: 2021Q4

REPORT INFORMATION
  Report Type: Spontaneous
  Country: PT (occurrence: PT)
  Receive Date: 20211112
  Receipt Date: 20211229
  Transmission Date: 20220303
  Serious: Yes (Congenital Anomaly, Other)
  Sender: FDA-Public Use
  Company Number: PT-CIPLA LTD.-2021PT07363

PATIENT

DRUGS (3)
  1. TENOFOVIR [Suspect]
     Active Substance: TENOFOVIR
     Dosage: 245 MILLIGRAM, QD
     Route: 064
  2. EMTRICITABINE [Suspect]
     Active Substance: EMTRICITABINE
     Dosage: 200 MILLIGRAM, QD
     Route: 064
  3. DOLUTEGRAVIR [Suspect]
     Active Substance: DOLUTEGRAVIR
     Dosage: 50 MILLIGRAM, QD
     Route: 064

REACTIONS (2)
  - Pulmonary hypoplasia [Unknown]
  - Foetal exposure during pregnancy [Unknown]
